FAERS Safety Report 15180729 (Version 1)
Quarter: 2018Q3

REPORT INFORMATION
  Report Type: Report from Study
  Country: US (occurrence: US)
  Receive Date: 20180723
  Receipt Date: 20180723
  Transmission Date: 20181010
  Serious: Yes (Hospitalization, Other)
  Sender: FDA-Public Use
  Company Number: US-ROCHE-2158082

PATIENT
  Age: 59 Year
  Sex: Female
  Weight: 124.85 kg

DRUGS (1)
  1. LUCENTIS [Suspect]
     Active Substance: RANIBIZUMAB
     Indication: NEOVASCULAR AGE-RELATED MACULAR DEGENERATION
     Dosage: ONGOING: YES
     Route: 065

REACTIONS (5)
  - Type 2 diabetes mellitus [Unknown]
  - Malaise [Unknown]
  - Septic shock [Recovering/Resolving]
  - Confusional state [Unknown]
  - Gait disturbance [Unknown]

NARRATIVE: CASE EVENT DATE: 20180630
